FAERS Safety Report 21933804 (Version 1)
Quarter: 2023Q1

REPORT INFORMATION
  Report Type: Spontaneous
  Country: CA (occurrence: None)
  Receive Date: 20230201
  Receipt Date: 20230201
  Transmission Date: 20230418
  Serious: Yes (Other)
  Sender: FDA-Public Use
  Company Number: CA-ROCHE-3274272

PATIENT
  Age: 74 Year
  Sex: Male

DRUGS (1)
  1. PIRFENIDONE [Suspect]
     Active Substance: PIRFENIDONE
     Indication: Idiopathic pulmonary fibrosis
     Route: 048

REACTIONS (3)
  - Arteriosclerosis coronary artery [Unknown]
  - Bronchiectasis [Unknown]
  - Interstitial lung disease [Unknown]
